FAERS Safety Report 7246318-9 (Version None)
Quarter: 2011Q1

REPORT INFORMATION
  Report Type: 
  Country: None (occurrence: None)
  Receive Date: 20110126
  Receipt Date: 20101106
  Transmission Date: 20110831
  Serious: Yes (Hospitalization)
  Sender: FDA-Public Use
  Company Number: PHHY2010US75014

PATIENT
  Age: 50 Year
  Sex: Male

DRUGS (4)
  1. ACCUPRIL [Suspect]
  2. TOPROL-XL [Suspect]
  3. DIOVAN [Suspect]
  4. DIURETICS [Suspect]

REACTIONS (7)
  - CARDIAC DISORDER [None]
  - PHLEBITIS [None]
  - POOR PERIPHERAL CIRCULATION [None]
  - BLOOD CHOLESTEROL INCREASED [None]
  - DIABETES MELLITUS [None]
  - BLOOD PRESSURE INADEQUATELY CONTROLLED [None]
  - HYPERTENSION [None]
